FAERS Safety Report 7212392-9 (Version None)
Quarter: 2011Q1

REPORT INFORMATION
  Report Type: 
  Country: None (occurrence: None)
  Receive Date: 20110106
  Receipt Date: 20101230
  Transmission Date: 20110831
  Serious: Yes (Hospitalization)
  Sender: FDA-Public Use
  Company Number: US-B.I. PHARMACEUTICALS,INC./RIDGEFIELD-2011-BP-00256BP

PATIENT
  Sex: Male

DRUGS (11)
  1. PRADAXA [Suspect]
     Indication: ATRIAL FIBRILLATION
     Dosage: 300 MG
     Route: 048
     Dates: start: 20101201
  2. LIPITOR [Concomitant]
     Indication: BLOOD CHOLESTEROL INCREASED
  3. METFORMIN HCL [Concomitant]
     Indication: DIABETES MELLITUS
  4. HUMULIN INSULIN [Concomitant]
     Indication: DIABETES MELLITUS
  5. LORAZEPAM [Concomitant]
     Indication: SLEEP DISORDER
  6. CYMBALTA [Concomitant]
  7. CARVEDILOL [Concomitant]
  8. ALDACTONE [Concomitant]
  9. MICARDIS [Concomitant]
  10. SPIRIVA [Concomitant]
  11. LOVASA [Concomitant]

REACTIONS (1)
  - GASTROINTESTINAL HAEMORRHAGE [None]
